FAERS Safety Report 4664714-0 (Version None)
Quarter: 2005Q2

REPORT INFORMATION
  Report Type: 
  Country: None (occurrence: None)
  Receive Date: 20050516
  Receipt Date: 20050430
  Transmission Date: 20051028
  Serious: Yes (Other)
  Sender: FDA-Public Use
  Company Number: 2005060507

PATIENT
  Age: 39 Year
  Sex: Female

DRUGS (4)
  1. BEXTRA [Suspect]
     Indication: FIBROMYALGIA
     Dosage: 120 MG (40 MG, 3 IN 1 D), ORAL
     Route: 048
     Dates: start: 20040101, end: 20040101
  2. KETOPROFEN [Concomitant]
  3. MEPERIDINE HYDROCHLORIDE [Concomitant]
  4. CARBAMAZEPINE [Concomitant]

REACTIONS (1)
  - DRUG HYPERSENSITIVITY [None]
